FAERS Safety Report 8823896 (Version 2)
Quarter: 2013Q1

REPORT INFORMATION
  Report Type: Spontaneous
  Country: US (occurrence: US)
  Receive Date: 20121003
  Receipt Date: 20130123
  Transmission Date: 20140127
  Serious: No
  Sender: FDA-Public Use
  Company Number: US-009507513-1209USA006364

PATIENT
  Sex: Female

DRUGS (3)
  1. PEGINTRON [Suspect]
     Indication: HEPATITIS C
     Dosage: 0.4 (UNITS UNKNOWN)
     Dates: start: 20120828
  2. PEGINTRON [Suspect]
     Dosage: 0.3 (UNITS UNKNOWN)
  3. RIBAVIRIN [Suspect]
     Indication: HEPATITIS C
     Dosage: UNK
     Dates: start: 20120828

REACTIONS (17)
  - Blood uric acid increased [Unknown]
  - Injection site erythema [Unknown]
  - Skin lesion [Recovering/Resolving]
  - Eczema [Recovering/Resolving]
  - Skin disorder [Unknown]
  - Insomnia [Unknown]
  - Malaise [Unknown]
  - Platelet count decreased [Unknown]
  - White blood cell count decreased [Unknown]
  - Neutropenia [Unknown]
  - Asthenia [Unknown]
  - White blood cell count decreased [Unknown]
  - Neutrophil count decreased [Unknown]
  - Platelet count decreased [Unknown]
  - Pruritus [Not Recovered/Not Resolved]
  - Dry skin [Unknown]
  - Dry skin [Unknown]
